FAERS Safety Report 4705012-6 (Version None)
Quarter: 2005Q3

REPORT INFORMATION
  Report Type: 
  Country: None (occurrence: None)
  Receive Date: 20050701
  Receipt Date: 20050623
  Transmission Date: 20060218
  Serious: Yes (Hospitalization)
  Sender: FDA-Public Use
  Company Number: JP-JNJFOC-20050505662

PATIENT
  Sex: Female
  Weight: 54 kg

DRUGS (18)
  1. REMICADE [Suspect]
     Route: 042
  2. REMICADE [Suspect]
     Route: 042
  3. REMICADE [Suspect]
     Route: 042
  4. REMICADE [Suspect]
     Route: 042
  5. REMICADE [Suspect]
     Route: 042
  6. REMICADE [Suspect]
     Route: 042
  7. REMICADE [Suspect]
     Route: 042
  8. REMICADE [Suspect]
     Route: 042
  9. REMICADE [Suspect]
     Route: 042
  10. REMICADE [Suspect]
     Route: 042
  11. REMICADE [Suspect]
     Dosage: 12TH DOSE
     Route: 042
  12. REMICADE [Suspect]
     Indication: RHEUMATOID ARTHRITIS
     Dosage: 11TH INFUSION
     Route: 042
  13. METHOTREXATE [Suspect]
  14. METHOTREXATE [Suspect]
     Indication: DRUG USE FOR UNKNOWN INDICATION
  15. METOLATE [Concomitant]
     Indication: RHEUMATOID ARTHRITIS
     Dosage: DOSE ALSO REPORTED AS 6 MG/WEEK
     Route: 041
  16. INTEBAN [Concomitant]
     Indication: RHEUMATOID ARTHRITIS
     Route: 049
  17. RIMATIL [Concomitant]
     Indication: RHEUMATOID ARTHRITIS
     Route: 049
  18. PREDONINE [Concomitant]
     Indication: RHEUMATOID ARTHRITIS
     Route: 049

REACTIONS (1)
  - HERPES ZOSTER [None]
